FAERS Safety Report 15049693 (Version 1)
Quarter: 2018Q2

REPORT INFORMATION
  Report Type: Spontaneous
  Country: US (occurrence: US)
  Receive Date: 20180622
  Receipt Date: 20180622
  Transmission Date: 20180711
  Serious: No
  Sender: FDA-Public Use
  Company Number: US-ADAMAS PHARMA, LLC-2018ADA00453

PATIENT
  Age: 78 Year
  Sex: Male
  Weight: 79.37 kg

DRUGS (15)
  1. GOCOVRI [Suspect]
     Active Substance: AMANTADINE
     Indication: DYSKINESIA
     Dosage: 274 MG, 1X/DAY AT BETIME
     Route: 048
     Dates: start: 201802
  2. GOCOVRI [Suspect]
     Active Substance: AMANTADINE
     Dosage: 137 MG, 1X/DAY
     Route: 048
  3. MULTIVITAMIN [Concomitant]
     Active Substance: VITAMINS
  4. POTASSIUM [Concomitant]
     Active Substance: POTASSIUM
  5. RASAGILINE. [Concomitant]
     Active Substance: RASAGILINE
  6. COQ10 [Concomitant]
     Active Substance: UBIDECARENONE
  7. PROBIOTIC [Concomitant]
     Active Substance: PROBIOTICS NOS
  8. SIMVASTATIN. [Concomitant]
     Active Substance: SIMVASTATIN
  9. FINASTERIDE. [Concomitant]
     Active Substance: FINASTERIDE
  10. FOLIC ACID. [Concomitant]
     Active Substance: FOLIC ACID
  11. OMEGA-3 FATTY ACIDS [Concomitant]
     Active Substance: OMEGA-3 FATTY ACIDS
  12. OMEPRAZOLE. [Concomitant]
     Active Substance: OMEPRAZOLE
  13. SINEMET [Concomitant]
     Active Substance: CARBIDOPA\LEVODOPA
     Dosage: 1.75 TABLETS, 3X/DAY
  14. MIRALAX [Concomitant]
     Active Substance: POLYETHYLENE GLYCOL 3350
     Dosage: UNK, AS NEEDED
  15. VESICARE [Concomitant]
     Active Substance: SOLIFENACIN SUCCINATE

REACTIONS (1)
  - Myoclonus [Recovered/Resolved]

NARRATIVE: CASE EVENT DATE: 201802
